FAERS Safety Report 17831742 (Version 4)
Quarter: 2020Q3

REPORT INFORMATION
  Report Type: Spontaneous
  Country: US (occurrence: US)
  Receive Date: 20200528
  Receipt Date: 20200812
  Transmission Date: 20201103
  Serious: No
  Sender: FDA-Public Use
  Company Number: US-JNJFOC-20200512954

PATIENT
  Age: 7 Decade
  Sex: Female

DRUGS (1)
  1. WOMENS ROGAINE UNSCENTED [Suspect]
     Active Substance: MINOXIDIL
     Indication: ALOPECIA
     Route: 061
     Dates: start: 20180221, end: 20200214

REACTIONS (6)
  - Alopecia [Not Recovered/Not Resolved]
  - Application site scab [Recovered/Resolved]
  - Hypersensitivity [Recovered/Resolved]
  - Secretion discharge [Recovered/Resolved]
  - Application site dryness [Not Recovered/Not Resolved]
  - Expired product administered [Unknown]

NARRATIVE: CASE EVENT DATE: 20200212
